FAERS Safety Report 4484725-8 (Version None)
Quarter: 2004Q4

REPORT INFORMATION
  Report Type: 
  Country: None (occurrence: None)
  Receive Date: 20041025
  Receipt Date: 20041015
  Transmission Date: 20050328
  Serious: Yes (Hospitalization, Other)
  Sender: FDA-Public Use
  Company Number: AT-MERCK-0410AUT00067

PATIENT
  Sex: Male

DRUGS (4)
  1. VIOXX [Suspect]
     Indication: RHEUMATOID ARTHRITIS
     Route: 048
     Dates: start: 20020123, end: 20030101
  2. AMLODIPINE BESYLATE [Concomitant]
     Indication: HYPERTENSION
     Route: 065
  3. FOSINOPRIL SODIUM [Concomitant]
     Indication: HYPERTENSION
     Route: 065
     Dates: start: 20040501
  4. MOXONIDINE [Concomitant]
     Indication: HYPERTENSION
     Route: 065

REACTIONS (4)
  - BLOOD PRESSURE INCREASED [None]
  - CHEST DISCOMFORT [None]
  - DUODENAL POLYP [None]
  - MYOCARDIAL INFARCTION [None]
